FAERS Safety Report 5834739-8 (Version None)
Quarter: 2008Q3

REPORT INFORMATION
  Report Type: 
  Country: None (occurrence: None)
  Receive Date: 20080805
  Receipt Date: 20080728
  Transmission Date: 20090109
  Serious: Yes (Hospitalization, Other)
  Sender: FDA-Public Use
  Company Number: US-AMGEN-QUU297843

PATIENT
  Sex: Female

DRUGS (2)
  1. ENBREL [Suspect]
     Indication: RHEUMATOID ARTHRITIS
     Route: 058
     Dates: start: 20070712
  2. METHOTREXATE [Concomitant]
     Route: 048

REACTIONS (8)
  - AORTIC STENOSIS [None]
  - CARDIAC VALVE DISEASE [None]
  - CORONARY ARTERY BYPASS [None]
  - DYSPNOEA [None]
  - INJECTION SITE HAEMATOMA [None]
  - MUSCULOSKELETAL PAIN [None]
  - PNEUMONIA [None]
  - WEIGHT INCREASED [None]
